FAERS Safety Report 9917895 (Version 1)
Quarter: 2014Q1

REPORT INFORMATION
  Report Type: Report from Study
  Country: US (occurrence: US)
  Receive Date: 20140221
  Receipt Date: 20140221
  Transmission Date: 20141002
  Serious: Yes (Hospitalization, Other)
  Sender: FDA-Public Use
  Company Number: US-ROCHE-1347236

PATIENT
  Sex: 0

DRUGS (9)
  1. RIBAVIRIN [Suspect]
     Indication: CHRONIC HEPATITIS C
     Dosage: RBV WAS ADMINISTERED IN A DIVIDED TOTAL DAILY ORAL DOSE OF 1000 MG FOR PATIENTS WEIGHING LESS THAN 7
     Route: 048
  2. RIBAVIRIN [Suspect]
     Dosage: RBV WAS ADMINISTERED IN A DIVIDED TOTAL DAILY ORAL DOSE OF 1000 MG FOR PATIENTS WEIGHING LESS THAN 7
     Route: 048
  3. PEG-INTERFERON ALFA 2A [Suspect]
     Indication: CHRONIC HEPATITIS C
     Dosage: AS AN ADDITIONAL RESCUE SUBSTUDY FOR 24 OR 48 WEEKS .
     Route: 058
  4. LEDIPASVIR [Suspect]
     Indication: CHRONIC HEPATITIS C
     Dosage: FOR 24 WEEKS (ARM 1)
     Route: 048
  5. LEDIPASVIR [Suspect]
     Dosage: FOR 12  OR 24 WEEKS (ARM 2)
     Route: 048
  6. VEDROPREVIR [Suspect]
     Indication: CHRONIC HEPATITIS C
     Dosage: FOR 24 WEEKS (ARM 1)
     Route: 048
  7. VEDROPREVIR [Suspect]
     Dosage: FOR 12 OR 24 WEEKS (ARM 2)
     Route: 048
  8. TEGOBUVIR [Suspect]
     Indication: CHRONIC HEPATITIS C
     Dosage: FOR 24 WEEKS (ARM 1)
     Route: 048
  9. TEGOBUVIR [Suspect]
     Dosage: FOR 12 OR 24 WEEKS (ARM 2)
     Route: 048

REACTIONS (7)
  - Pancreatitis [Unknown]
  - Haemoglobin decreased [Unknown]
  - Blood bilirubin increased [Unknown]
  - Iritis [Unknown]
  - Vitritis [Unknown]
  - Muscle atrophy [Unknown]
  - Acute psychosis [Unknown]
